FAERS Safety Report 24100402 (Version 2)
Quarter: 2024Q3

REPORT INFORMATION
  Report Type: Report from Study
  Country: US (occurrence: US)
  Receive Date: 20240717
  Receipt Date: 20240721
  Transmission Date: 20241016
  Serious: Yes (Death)
  Sender: ABBVIE
  Company Number: US-ABBVIE-5842170

PATIENT
  Sex: Male

DRUGS (31)
  1. VENCLEXTA [Suspect]
     Active Substance: VENETOCLAX
     Indication: Acute myeloid leukaemia
     Dosage: FORM STRENGTH 100MG TABLET, ONE TAB DAILY TAKE 100 MG BY MOUTH DAILY. AVOID? GRAPEFRUIT PRODUCTS,...
     Route: 048
  2. NORCO [Concomitant]
     Active Substance: ACETAMINOPHEN\HYDROCODONE BITARTRATE
     Indication: Pain
     Dosage: 5MG/325MG TABLET TAKE? ONE TAB TO TWO TABS BY? MOUTH EVERY 4 HOURS AS? NEEDED FOR PAIN
     Route: 048
  3. GLYCOLAX [Concomitant]
     Active Substance: POLYETHYLENE GLYCOL 3350
     Indication: Product used for unknown indication
     Dosage: 17 G PACKET TAKE ONE? PACKET BY MOUTH DAILY? DISSOLVE IN 4-8 OUNCES OF? BEVERAGE
     Route: 048
  4. MIRALAX [Concomitant]
     Active Substance: POLYETHYLENE GLYCOL 3350
     Indication: Product used for unknown indication
     Dosage: 17 G PACKET TAKE ONE? PACKET BY MOUTH DAILY? DISSOLVE IN 4-8 OUNCES OF? BEVERAGE
     Route: 048
  5. ZOFRAN [Concomitant]
     Active Substance: ONDANSETRON HYDROCHLORIDE
     Indication: Nausea
     Dosage: 4MG TAB TAKE ONE TAB BY? MOUTH EVERY 8 HOURS AS? NEEDED
     Route: 048
  6. COMPAZINE [Concomitant]
     Active Substance: PROCHLORPERAZINE MALEATE
     Indication: Product used for unknown indication
     Dosage: 10MG TAB TAKE ONE TAB? BY MOUTH EVERY 6 HOURS? WHILE AWAKE
     Route: 048
  7. ZOVIRAX [Concomitant]
     Active Substance: ACYCLOVIR
     Indication: Product used for unknown indication
     Dosage: 400MG TAB TAKE ONE TAB? BY MOUTH TWICE DAILY
     Route: 048
  8. ASCORBIC ACID [Concomitant]
     Active Substance: ASCORBIC ACID
     Indication: Product used for unknown indication
     Dosage: TAKE BY MOUTH
     Route: 048
  9. DULCOLAX [Concomitant]
     Indication: Product used for unknown indication
     Dosage: 10MG SUPP UNWRAP +? INSERT ONE SUPPOSITORY? RECTALLY ONCE PRN
     Route: 054
  10. ASPIRIN [Concomitant]
     Active Substance: ASPIRIN
     Indication: Product used for unknown indication
     Dosage: PO 81 MG
     Route: 048
  11. CRESTOR [Concomitant]
     Active Substance: ROSUVASTATIN CALCIUM
     Indication: Product used for unknown indication
     Dosage: 10MG TAB EVERY 24 HOURS
     Route: 048
  12. DIOVAN [Concomitant]
     Active Substance: VALSARTAN
     Indication: Product used for unknown indication
     Dosage: 40MG TAB Q12HR
     Route: 048
  13. VITAMIN D [Concomitant]
     Active Substance: VITAMIN D NOS
     Indication: Product used for unknown indication
     Dosage: 50000 UNITS CAPS TAKE? BY MOUTH
     Route: 048
  14. ALBUTEROL [Concomitant]
     Active Substance: ALBUTEROL
     Indication: Product used for unknown indication
     Dosage: 0.083% NEB SOLUTION USE? ONE AMPULE VIA NEBULIZER? EVERY 2 HOURS AS NEEDED
     Route: 045
  15. AVODART [Concomitant]
     Active Substance: DUTASTERIDE
     Indication: Product used for unknown indication
     Dosage: 0.5MG CAP TAKE ONE CAP? BY MOUTH DAILY AT BEDTIME
     Route: 048
  16. CIPRO [Concomitant]
     Active Substance: CIPROFLOXACIN HYDROCHLORIDE
     Indication: Product used for unknown indication
     Dosage: 500MG TAB TAKE ONE TAB? BY MOUTH EVERY 12 HOURS
     Route: 048
  17. ACZONE [Concomitant]
     Active Substance: DAPSONE
     Indication: Product used for unknown indication
     Dosage: 100MG TABS TAB TAKE? ONE TAB BY MOUTH DAILY
     Route: 048
  18. BENADRYL [Concomitant]
     Active Substance: DIPHENHYDRAMINE HYDROCHLORIDE
     Indication: Pruritus
     Dosage: 25MG CAP TAKE ONE CAP? BY MOUTH EVERY 6 HOURS AS? NEEDED FOR ITCHING
     Route: 048
  19. DOCUSATE SODIUM [Concomitant]
     Active Substance: DOCUSATE SODIUM
     Indication: Product used for unknown indication
     Dosage: 100 MG CAPSULE TAKE 100 MG BY MOUTH TWICE DAILY
     Route: 048
  20. FLONASE [Concomitant]
     Active Substance: FLUTICASONE PROPIONATE
     Indication: Product used for unknown indication
     Dosage: 50MCG NASAL SUSP? ADMINISTER ONE SPRAY TO? EACH NOSTRIL DAILY
     Route: 045
  21. LASIX [Concomitant]
     Active Substance: FUROSEMIDE
     Indication: Product used for unknown indication
     Dosage: 40MG TAB TAKE ONE TAB? BY MOUTH DAILY
     Route: 048
  22. PROTONIX [Concomitant]
     Active Substance: PANTOPRAZOLE SODIUM
     Indication: Product used for unknown indication
     Dosage: 40MG EC TAB TAKE ONE? TAB BY MOUTH DAILY 30? MINUTES BEFORE BREAKFAST
     Route: 048
  23. SENOKOT [Concomitant]
     Active Substance: SENNOSIDES
     Indication: Product used for unknown indication
     Dosage: 8.6MG TAB TAKE ONE TAB? BY MOUTH DAILY AT BEDTIME
     Route: 048
  24. AMBIEN [Concomitant]
     Active Substance: ZOLPIDEM TARTRATE
     Indication: Product used for unknown indication
     Dosage: 5MG TAB TAKE ONE HALF? TAB BY MOUTH DAILY AT? BEDTIME
     Route: 048
  25. NOXAFIL [Concomitant]
     Active Substance: POSACONAZOLE
     Indication: Product used for unknown indication
     Dosage: 100MG EC TAB TAKE THREE? TABS BY MOUTH DAILY
     Route: 048
  26. VITAMIN C [Concomitant]
     Active Substance: ASCORBIC ACID
     Indication: Product used for unknown indication
     Dosage: PO TAKE 1 TAB BY MOUTH? EVERY MORNING
     Route: 048
  27. VITAMIN D3 [Concomitant]
     Active Substance: CHOLECALCIFEROL
     Indication: Product used for unknown indication
     Dosage: 5,000 UNITS TAB TAKE? ONE TAB BY MOUTH EVERY? MORNING
     Route: 048
  28. LEVOTHYROXINE [Concomitant]
     Active Substance: LEVOTHYROXINE\LEVOTHYROXINE SODIUM
     Indication: Product used for unknown indication
     Dosage: 50MCG TAB TAKE 1? TABLET BY MOUTH? EVERY MORNING? BEFORE A MEAL ON AN? EMPTY STOMACH
     Route: 048
  29. MAGNESIUM OXIDE [Concomitant]
     Active Substance: MAGNESIUM OXIDE
     Indication: Product used for unknown indication
     Dosage: 400MG TAB TAKE ONE TAB? BY MOUTH EVERY MORNING
     Route: 048
  30. FLOMAX [Concomitant]
     Active Substance: TAMSULOSIN HYDROCHLORIDE
     Indication: Product used for unknown indication
     Dosage: 0.4MG CAP TAKE ONE CAP BY MOUTH EVERY EVENING
     Route: 048
  31. WELLBUTRIN XL [Concomitant]
     Active Substance: BUPROPION HYDROCHLORIDE
     Indication: Product used for unknown indication
     Dosage: 150MG TAB 24HR TAKE? ONE TAB BY MOUTH EVERY? EVENING
     Route: 048

REACTIONS (1)
  - Death [Fatal]
